FAERS Safety Report 8162486-9 (Version None)
Quarter: 2012Q1

REPORT INFORMATION
  Report Type: 
  Country: None (occurrence: None)
  Receive Date: 20120224
  Receipt Date: 20120224
  Transmission Date: 20120608
  Serious: Yes (Other)
  Sender: FDA-Public Use
  Company Number: None

PATIENT
  Age: 46 Year
  Sex: Male
  Weight: 95.254 kg

DRUGS (1)
  1. SYNTHROID [Suspect]
     Indication: HYPOTHYROIDISM
     Dosage: 37.5 MCG
     Route: 048
     Dates: start: 20111221, end: 20120223

REACTIONS (2)
  - SLEEP PHASE RHYTHM DISTURBANCE [None]
  - SLEEP DISORDER [None]
